FAERS Safety Report 10601732 (Version 1)
Quarter: 2014Q4

REPORT INFORMATION
  Report Type: Spontaneous
  Country: IN (occurrence: None)
  Receive Date: 20141120
  Receipt Date: 20141120
  Transmission Date: 20150529
  Serious: Yes (Hospitalization)
  Sender: FDA-Public Use
  Company Number: FK201405213

PATIENT
  Age: 2 Year
  Sex: Male

DRUGS (5)
  1. VINCRISTINE (VINCRISTINE) [Concomitant]
     Active Substance: VINCRISTINE
  2. DEXAMETHASONE INJECTION (MANUFACTURER UNKNOWN) (DEXAMETHASONE SODIUM PHOSPHATE) (DEXAMETHASONE SODIUM PHOSPHATE) [Suspect]
     Active Substance: DEXAMETHASONE
     Indication: ACUTE LYMPHOCYTIC LEUKAEMIA
  3. CHEMOTHERAPY (CHEMOTHERAPY) [Concomitant]
  4. PEG/L-ASPARAGINASE [Suspect]
     Active Substance: PEGASPARGASE
     Indication: ACUTE LYMPHOCYTIC LEUKAEMIA
  5. METHOTREXATE (METHOTREXATE) [Concomitant]
     Active Substance: METHOTREXATE

REACTIONS (4)
  - Hemiparesis [None]
  - Cerebral venous thrombosis [None]
  - Status epilepticus [None]
  - Partial seizures [None]
